FAERS Safety Report 6258316-2 (Version None)
Quarter: 2009Q3

REPORT INFORMATION
  Report Type: 
  Country: None (occurrence: None)
  Receive Date: 20090707
  Receipt Date: 20090625
  Transmission Date: 20100115
  Serious: Yes (Hospitalization, Other)
  Sender: FDA-Public Use
  Company Number: GB-NOVOPROD-286000

PATIENT
  Sex: Male
  Weight: 46.7 kg

DRUGS (4)
  1. NORDITROPIN [Suspect]
     Indication: GROWTH HORMONE DEFICIENCY
     Dosage: 1,1MG FOR 8 DAYS, 1,2MG FOR 1 DAY AVERAGING A DOSE OF 1.7 MG A DAY TO AVOID WASTAGE
     Dates: start: 20030114, end: 20090330
  2. HYDROCORTISONE [Concomitant]
     Dosage: 12.5 MG, QD (5+5+2.5)
     Dates: start: 20051101
  3. HYDROCORTISONE [Concomitant]
     Dosage: 5 MG, TID
     Dates: start: 20060101
  4. LEVOTHYROXINE SODIUM [Concomitant]
     Dosage: 75 UG, QD (50 TO 75)
     Dates: start: 20030601

REACTIONS (1)
  - EPENDYMOMA MALIGNANT [None]
